FAERS Safety Report 7906465 (Version 2)
Quarter: 2012Q4

REPORT INFORMATION
  Report Type: 
  Country: VE (occurrence: VE)
  Receive Date: 20110420
  Receipt Date: 20121214
  Transmission Date: 20130627
  Serious: Yes (Death)
  Sender: FDA-Public Use
  Company Number: PHHY2011VE32698

PATIENT
  Age: 73 Year
  Sex: Female

DRUGS (10)
  1. ACLASTA [Suspect]
     Indication: OSTEOPOROSIS
     Dosage: 5 mg, UNK
     Route: 042
     Dates: start: 20100823
  2. PRESOQUIN [Concomitant]
     Indication: HYPERTENSION
     Dosage: 90 mg, QD
     Route: 048
     Dates: start: 2008
  3. ASPIRINA [Concomitant]
     Dosage: 100 mg, QD
     Route: 048
     Dates: start: 2008
  4. CALCIBON D [Concomitant]
  5. VITAMINS [Concomitant]
  6. EOSINE [Concomitant]
  7. MAXEPA                                  /UNK/ [Concomitant]
     Dosage: UNK UKN, QD
     Route: 048
     Dates: start: 2008
  8. OXINORM                            /07623501/ [Concomitant]
     Dosage: 50 mg, QD
     Route: 048
     Dates: start: 2008
  9. LOSARTAN [Concomitant]
     Indication: HYPERTENSION
     Dosage: 50 mg, QD
     Route: 048
     Dates: start: 2008
  10. VITAMIN E [Concomitant]
     Dosage: UNK UKN, QD
     Route: 048
     Dates: start: 2008

REACTIONS (2)
  - Colon cancer [Fatal]
  - Metastasis [Fatal]
